FAERS Safety Report 11488348 (Version 1)
Quarter: 2015Q3

REPORT INFORMATION
  Report Type: Spontaneous
  Country: US (occurrence: US)
  Receive Date: 20150910
  Receipt Date: 20150910
  Transmission Date: 20151125
  Serious: No
  Sender: FDA-Public Use
  Company Number: US-ROCHE-1440650

PATIENT
  Sex: Male

DRUGS (3)
  1. SOVALDI [Suspect]
     Active Substance: SOFOSBUVIR
     Indication: CHRONIC HEPATITIS C
     Route: 048
     Dates: start: 20140719
  2. RIBAVIRIN. [Suspect]
     Active Substance: RIBAVIRIN
     Indication: CHRONIC HEPATITIS C
     Dosage: ROBASPHERE BRAND 1200 MG IN TWO DEVIDED DOSES
     Route: 048
     Dates: start: 20140719
  3. PEGASYS [Suspect]
     Active Substance: PEGINTERFERON ALFA-2A
     Indication: CHRONIC HEPATITIS C
     Route: 058
     Dates: start: 20140719

REACTIONS (6)
  - Headache [Unknown]
  - Somnolence [Unknown]
  - Pain [Unknown]
  - Injection site haemorrhage [Unknown]
  - Fatigue [Unknown]
  - Influenza like illness [Unknown]
